FAERS Safety Report 6227091-X (Version None)
Quarter: 2009Q2

REPORT INFORMATION
  Report Type: 
  Country: None (occurrence: None)
  Receive Date: 20090612
  Receipt Date: 20090528
  Transmission Date: 20091009
  Serious: No
  Sender: FDA-Public Use
  Company Number: US-ABBOTT-09P-163-0576537-00

PATIENT
  Sex: Female
  Weight: 63.56 kg

DRUGS (3)
  1. HUMIRA [Suspect]
     Indication: RHEUMATOID ARTHRITIS
     Dates: start: 20090430
  2. PHENOBARBITAL TAB [Concomitant]
     Indication: EPILEPSY
  3. EFFEXOR XR [Concomitant]
     Indication: DEPRESSION

REACTIONS (1)
  - JOINT SWELLING [None]
